FAERS Safety Report 6770850-5 (Version None)
Quarter: 2010Q2

REPORT INFORMATION
  Report Type: 
  Country: None (occurrence: None)
  Receive Date: 20100614
  Receipt Date: 20100614
  Transmission Date: 20101027
  Serious: Yes (Hospitalization)
  Sender: FDA-Public Use
  Company Number: None

PATIENT
  Sex: Female
  Weight: 38.18 kg

DRUGS (2)
  1. FLUOROURACIL [Suspect]
     Dosage: 1188 MG
     Dates: end: 20100528
  2. ELOXATIN [Suspect]
     Dosage: 66 MG
     Dates: end: 20100524

REACTIONS (3)
  - ASTHENIA [None]
  - DIARRHOEA [None]
  - NO THERAPEUTIC RESPONSE [None]
